FAERS Safety Report 9492284 (Version 2)
Quarter: 2013Q3

REPORT INFORMATION
  Report Type: Spontaneous
  Country: JP (occurrence: JP)
  Receive Date: 20130830
  Receipt Date: 20130830
  Transmission Date: 20140515
  Serious: Yes (Hospitalization, Other)
  Sender: FDA-Public Use
  Company Number: JP-PFIZER INC-2013211713

PATIENT
  Age: 84 Year
  Sex: Female
  Weight: 50 kg

DRUGS (32)
  1. CELECOX [Suspect]
     Indication: PELVIC FRACTURE
     Dosage: 100 MG, 2X/DAY
     Route: 048
     Dates: start: 20130617, end: 20130702
  2. CELECOX [Suspect]
     Indication: PAIN
  3. AMLODIN [Suspect]
     Indication: HYPERTENSION
     Dosage: STRENGTH 5MG, 5 MG, 1X/DAY
     Route: 048
     Dates: end: 20130702
  4. ELCITONIN INJECTION 20S [Suspect]
     Indication: OSTEOPOROSIS
     Dosage: 20 ELCATONIN UNITS WEEKLY
     Route: 065
     Dates: start: 20130626, end: 20130702
  5. CALONAL [Suspect]
     Indication: PELVIC FRACTURE
     Dosage: 200 MG, 3X/DAY
     Route: 048
     Dates: start: 20130702, end: 20130708
  6. CALONAL [Suspect]
     Indication: PAIN
  7. URSO [Concomitant]
     Indication: JAUNDICE
     Dosage: 50 MG, 3X/DAY, STRENGTH 100MG
     Route: 048
     Dates: start: 20130702, end: 20130708
  8. PRAZAXA [Concomitant]
     Indication: THROMBOSIS PROPHYLAXIS
     Dosage: 75 MG, 2X/DAY
     Route: 048
     Dates: start: 20130625, end: 20130709
  9. PRAZAXA [Concomitant]
     Indication: ATRIAL FIBRILLATION
  10. GASRICK D [Concomitant]
     Indication: GASTRITIS
     Dosage: UNK
     Dates: start: 20130617, end: 20130702
  11. SUNRYTHM [Concomitant]
     Indication: ATRIAL FIBRILLATION
     Dosage: UNK
     Dates: end: 20130702
  12. MAGMITT [Concomitant]
     Indication: CONSTIPATION
     Dosage: UNK
     Dates: start: 20130617, end: 20130702
  13. MUCOSOLVAN [Concomitant]
     Indication: SPUTUM ABNORMAL
     Dosage: UNK
     Dates: start: 20130617, end: 20130702
  14. SORENTMIN [Concomitant]
     Indication: INSOMNIA
     Dosage: UNK
     Dates: start: 201306, end: 20130708
  15. ASPARA-CA [Concomitant]
     Indication: OSTEOPOROSIS
     Dosage: UNK
     Dates: start: 20130626, end: 20130702
  16. EDIROL [Concomitant]
     Indication: OSTEOPOROSIS
     Dosage: UNK
     Dates: start: 20130626, end: 20130702
  17. TOCLASE [Concomitant]
     Indication: COUGH
     Dosage: UNK
     Dates: start: 20130627, end: 20130702
  18. CODEINE PHOSPHATE [Concomitant]
     Indication: COUGH
     Dosage: POWDER
  19. MERISLON [Concomitant]
     Indication: DIZZINESS
     Dosage: UNK
     Dates: start: 20130702, end: 20130706
  20. ASVERIN [Concomitant]
     Indication: COUGH
     Dosage: UNK
     Dates: start: 20130702, end: 20130708
  21. LANSOPRAZOLE [Concomitant]
     Indication: GASTRITIS
     Dosage: UNK
     Dates: start: 20130702, end: 20130708
  22. DAIKENCHUUTOU [Concomitant]
     Indication: CONSTIPATION
     Dosage: UNK
     Dates: start: 20130702, end: 20130708
  23. K-SUPPLY [Concomitant]
     Dosage: 1200 MG DAILY
     Route: 048
     Dates: start: 20130706, end: 20130708
  24. ADOFEED [Concomitant]
     Indication: HEADACHE
     Dosage: TAPE
     Dates: start: 20130630
  25. BFLUID [Concomitant]
     Indication: DECREASED APPETITE
     Dosage: 1000 ML DAILY
     Dates: start: 20130626, end: 20130708
  26. BFLUID [Concomitant]
     Indication: DRUG-INDUCED LIVER INJURY
  27. PRIMPERAN [Concomitant]
     Indication: NAUSEA
     Dosage: UNK
     Dates: start: 20130626, end: 20130626
  28. MEYLON [Concomitant]
     Indication: DIZZINESS
     Dosage: UNK
     Dates: start: 20130628, end: 20130701
  29. OYPALOMIN [Concomitant]
     Indication: SCAN WITH CONTRAST
     Dosage: 1 BOTTLE DAILY
     Dates: start: 20130701, end: 20130701
  30. BILISCOPIN [Concomitant]
     Indication: SCAN WITH CONTRAST
     Dosage: UNK
     Dates: start: 20130702, end: 20130702
  31. LASIX [Concomitant]
     Indication: POLYURIA
     Dosage: 20 MG DAILY
     Dates: start: 20130706, end: 20130708
  32. SULPERAZON [Concomitant]
     Indication: CHOLANGITIS
     Dosage: 1 G, 2X/DAY
     Dates: start: 20130701, end: 20130708

REACTIONS (3)
  - Cholestasis [Recovered/Resolved]
  - Rash [Recovered/Resolved]
  - Intentional drug misuse [Unknown]
